FAERS Safety Report 5135852-3 (Version None)
Quarter: 2006Q4

REPORT INFORMATION
  Report Type: 
  Country: None (occurrence: None)
  Receive Date: 20061026
  Receipt Date: 20060215
  Transmission Date: 20070319
  Serious: Yes (Hospitalization)
  Sender: FDA-Public Use
  Company Number: US-ABBOTT-06P-163-0325048-00

PATIENT
  Sex: Male
  Weight: 57.204 kg

DRUGS (5)
  1. DEPAKOTE [Suspect]
     Indication: IMPULSE-CONTROL DISORDER
     Dosage: 1000-1500 MG/DAY
     Route: 048
     Dates: start: 20040630, end: 20050901
  2. DEPAKOTE ER [Suspect]
     Indication: IMPULSE-CONTROL DISORDER
     Route: 048
     Dates: start: 20050901, end: 20060101
  3. DEPAKOTE ER [Suspect]
     Route: 048
     Dates: start: 20060101, end: 20060201
  4. DEPAKOTE ER [Suspect]
     Route: 048
     Dates: start: 20060201, end: 20060201
  5. ABILIFY [Concomitant]
     Indication: MENTAL DISORDER
     Dosage: 5-10 MG PER DAY
     Route: 048
     Dates: end: 20050901

REACTIONS (4)
  - ABNORMAL BEHAVIOUR [None]
  - HALLUCINATION [None]
  - SUICIDAL IDEATION [None]
  - THINKING ABNORMAL [None]
